FAERS Safety Report 5841920-0 (Version None)
Quarter: 2008Q3

REPORT INFORMATION
  Report Type: 
  Country: None (occurrence: None)
  Receive Date: 20080731
  Receipt Date: 20080609
  Transmission Date: 20090109
  Serious: No
  Sender: FDA-Public Use
  Company Number: US200805003823

PATIENT
  Age: 72 Year
  Sex: Female
  Weight: 99.8 kg

DRUGS (11)
  1. BYETTA [Suspect]
     Indication: TYPE 2 DIABETES MELLITUS
     Dosage: 5 UG, 2/D, SUBCUTANEOUS; 10 UG, 2/D, SUBCUTANEOUS
     Route: 058
     Dates: start: 20070201, end: 20070401
  2. BYETTA [Suspect]
     Indication: TYPE 2 DIABETES MELLITUS
     Dosage: 5 UG, 2/D, SUBCUTANEOUS; 10 UG, 2/D, SUBCUTANEOUS
     Route: 058
     Dates: start: 20070401
  3. EXENATIDE 5MCG PEN, DISPOSABLE DEVICE (EXENATIDE PEN (5MCG)) PEN,DISPO [Concomitant]
  4. EXENATIDE 10MCG PEN, DISPOSABLE DEVICE (EXENATIDE PEN (10MCG)) PEN,DIS [Concomitant]
  5. PRINIVIL [Concomitant]
  6. PRILOSEC [Concomitant]
  7. LASIX [Concomitant]
  8. CLINORIL [Concomitant]
  9. GLIPIZIDE [Concomitant]
  10. PREMARIN (ESTROGENS CONJUGATED, MEDROGESTONE) [Concomitant]
  11. METFORMIN HCL [Concomitant]

REACTIONS (7)
  - CHEST DISCOMFORT [None]
  - DIARRHOEA [None]
  - HYPERSENSITIVITY [None]
  - RASH ERYTHEMATOUS [None]
  - RASH PRURITIC [None]
  - TOOTH INFECTION [None]
  - TOOTHACHE [None]
